FAERS Safety Report 15225312 (Version 2)
Quarter: 2018Q3

REPORT INFORMATION
  Report Type: Other
  Country: GB (occurrence: GB)
  Receive Date: 20180801
  Receipt Date: 20180810
  Transmission Date: 20181010
  Serious: Yes (Other)
  Sender: FDA-Public Use
  Company Number: GB-ASTELLAS-2018US033802

PATIENT
  Age: 15 Year
  Sex: Female

DRUGS (1)
  1. MIRABEGRON [Suspect]
     Active Substance: MIRABEGRON
     Indication: HYPERTONIC BLADDER
     Route: 065

REACTIONS (8)
  - Suicidal ideation [Recovered/Resolved]
  - Fatigue [Recovered/Resolved]
  - Somnolence [Recovered/Resolved]
  - Product use issue [Unknown]
  - Depressed mood [Recovered/Resolved]
  - Anhedonia [Unknown]
  - Lethargy [Recovered/Resolved]
  - Asthenia [Recovered/Resolved]

NARRATIVE: CASE EVENT DATE: 201712
